FAERS Safety Report 4642876-9 (Version None)
Quarter: 2005Q2

REPORT INFORMATION
  Report Type: 
  Country: None (occurrence: None)
  Receive Date: 20050420
  Receipt Date: 20050406
  Transmission Date: 20051028
  Serious: Yes (Disabling)
  Sender: FDA-Public Use
  Company Number: GBS050317013

PATIENT
  Age: 62 Year
  Sex: Female

DRUGS (2)
  1. YENTREVE (DULOXETINE HYDROCHLORIDE) [Suspect]
     Indication: DEPRESSION
     Dosage: 60 MG
  2. MOVICOL [Concomitant]

REACTIONS (3)
  - ANKLE FRACTURE [None]
  - DIZZINESS [None]
  - SYNCOPE [None]
